FAERS Safety Report 8925997 (Version 1)
Quarter: 2012Q4

REPORT INFORMATION
  Report Type: 
  Country: PL (occurrence: PL)
  Receive Date: 20121126
  Receipt Date: 20121126
  Transmission Date: 20130627
  Serious: Yes (Death, Hospitalization)
  Sender: FDA-Public Use
  Company Number: PHHY2012PL107474

PATIENT
  Age: 77 Year
  Sex: Male

DRUGS (1)
  1. NILOTINIB [Suspect]
     Indication: CHRONIC MYELOID LEUKAEMIA
     Dosage: 800 mg, UNK
     Dates: start: 20120724, end: 20120820

REACTIONS (4)
  - Death [Fatal]
  - General physical health deterioration [Unknown]
  - Metastases to central nervous system [None]
  - Nervous system disorder [Unknown]
